FAERS Safety Report 6337182-0 (Version None)
Quarter: 2009Q3

REPORT INFORMATION
  Report Type: 
  Country: None (occurrence: None)
  Receive Date: 20090819
  Receipt Date: 20090731
  Transmission Date: 20100115
  Serious: Yes (Other)
  Sender: FDA-Public Use
  Company Number: THYM-1001137

PATIENT
  Age: 1 Year
  Sex: Male

DRUGS (4)
  1. THYMOGLOBULIN [Suspect]
     Indication: BONE MARROW TRANSPLANT
     Dosage: INTRAVENOUS
     Route: 042
  2. BUSULFAN AND CYCLOPHOSPHAMIDE [Concomitant]
  3. CYCLOSPORINE [Concomitant]
  4. STEROID [Concomitant]

REACTIONS (2)
  - ACUTE GRAFT VERSUS HOST DISEASE [None]
  - EPSTEIN-BARR VIRUS ASSOCIATED LYMPHOPROLIFERATIVE DISORDER [None]
